FAERS Safety Report 19420971 (Version 2)
Quarter: 2021Q3

REPORT INFORMATION
  Report Type: Spontaneous
  Country: US (occurrence: US)
  Receive Date: 20210615
  Receipt Date: 20210714
  Transmission Date: 20211014
  Serious: No
  Sender: FDA-Public Use
  Company Number: US-ASTRAZENECA-2021A489296

PATIENT
  Sex: Male
  Weight: 70.3 kg

DRUGS (2)
  1. BYDUREON BCISE [Concomitant]
     Active Substance: EXENATIDE
     Indication: DIABETES MELLITUS
     Route: 065
     Dates: start: 20210520
  2. BYDUREON [Suspect]
     Active Substance: EXENATIDE
     Indication: DIABETES MELLITUS
     Route: 065
     Dates: end: 20210513

REACTIONS (4)
  - Injection site pain [Unknown]
  - Needle issue [Unknown]
  - Device delivery system issue [Unknown]
  - Device use issue [Unknown]
